APPROVED DRUG PRODUCT: BUDESONIDE
Active Ingredient: BUDESONIDE
Strength: 1MG/2ML
Dosage Form/Route: SUSPENSION;INHALATION
Application: A204548 | Product #001 | TE Code: AN
Applicant: TEVA PHARMACEUTICALS USA
Approved: Mar 8, 2016 | RLD: No | RS: No | Type: RX